FAERS Safety Report 5286622-7 (Version None)
Quarter: 2007Q2

REPORT INFORMATION
  Report Type: 
  Country: None (occurrence: None)
  Receive Date: 20070404
  Receipt Date: 20070329
  Transmission Date: 20071010
  Serious: Yes (Hospitalization)
  Sender: FDA-Public Use
  Company Number: CA-GLAXOSMITHKLINE-B0449779A

PATIENT
  Age: 58 Year
  Sex: Female
  Weight: 81.2 kg

DRUGS (6)
  1. GW679769 [Suspect]
     Dates: start: 20061116
  2. ZOFRAN [Suspect]
     Dosage: 8MG PER DAY
     Route: 048
     Dates: start: 20061116
  3. DEXAMETHASONE [Suspect]
     Dosage: 8MG PER DAY
     Route: 042
     Dates: start: 20061116
  4. DOXORUBICIN HCL [Suspect]
     Indication: CHEMOTHERAPY
     Dosage: 108MG SINGLE DOSE
     Route: 042
     Dates: start: 20061116, end: 20061116
  5. CYCLOPHOSPHAMIDE [Suspect]
     Indication: CHEMOTHERAPY
     Dosage: 1080MG SINGLE DOSE
     Route: 042
     Dates: start: 20061116, end: 20061116
  6. SODIUM CHLORIDE [Concomitant]

REACTIONS (1)
  - FEBRILE NEUTROPENIA [None]
